FAERS Safety Report 10835050 (Version 1)
Quarter: 2015Q1

REPORT INFORMATION
  Report Type: Report from Study
  Country: US (occurrence: US)
  Receive Date: 20150219
  Receipt Date: 20150219
  Transmission Date: 20150721
  Serious: No
  Sender: FDA-Public Use
  Company Number: US-ABBVIE-14P-163-1206105-00

PATIENT
  Age: 75 Year
  Sex: Female

DRUGS (13)
  1. TRAMADOL [Concomitant]
     Active Substance: TRAMADOL
     Indication: BACK PAIN
  2. ENTOCORT [Concomitant]
     Active Substance: BUDESONIDE
     Indication: COLITIS ULCERATIVE
  3. OXYCONTIN [Concomitant]
     Active Substance: OXYCODONE HYDROCHLORIDE
     Indication: BACK PAIN
  4. HUMIRA [Suspect]
     Active Substance: ADALIMUMAB
     Indication: COLITIS ULCERATIVE
     Dates: start: 20140131, end: 20140131
  5. VOLTAREN [Concomitant]
     Active Substance: DICLOFENAC SODIUM
     Indication: PAIN
     Route: 061
  6. METOPROLOL [Concomitant]
     Active Substance: METOPROLOL
     Indication: HYPERTENSION
  7. NORVASC [Concomitant]
     Active Substance: AMLODIPINE BESYLATE
     Indication: HYPERTENSION
  8. OMEPRAZOLE. [Concomitant]
     Active Substance: OMEPRAZOLE
     Indication: DYSPEPSIA
  9. LYRICA [Concomitant]
     Active Substance: PREGABALIN
     Indication: BACK PAIN
  10. HUMIRA [Suspect]
     Active Substance: ADALIMUMAB
     Dates: start: 20140214, end: 20140214
  11. HUMIRA [Suspect]
     Active Substance: ADALIMUMAB
  12. LACTAID [Concomitant]
     Active Substance: LACTASE
     Dosage: EVERY EVENING
  13. LACTAID [Concomitant]
     Active Substance: LACTASE
     Indication: LACTOSE INTOLERANCE
     Dosage: EVERY MORNING

REACTIONS (1)
  - Thyroid neoplasm [Not Recovered/Not Resolved]

NARRATIVE: CASE EVENT DATE: 20140131
